FAERS Safety Report 18907421 (Version 1)
Quarter: 2021Q1

REPORT INFORMATION
  Report Type: Spontaneous
  Country: GB (occurrence: GB)
  Receive Date: 20210218
  Receipt Date: 20210218
  Transmission Date: 20210420
  Serious: No
  Sender: FDA-Public Use
  Company Number: GB-ALKEM LABORATORIES LIMITED-GB-ALKEM-2020-00005

PATIENT
  Age: 70 Year
  Sex: Female
  Weight: 62 kg

DRUGS (14)
  1. ACETYLSALICYLIC ACID [Concomitant]
     Active Substance: ASPIRIN
     Indication: ILL-DEFINED DISORDER
     Dosage: ONE TO BE TAKEN EACH DAY
     Route: 065
     Dates: start: 20190416
  2. FUCIDIN [Concomitant]
     Active Substance: FUSIDATE SODIUM
     Indication: ILL-DEFINED DISORDER
     Dosage: APPLY 2?3 TIMES AS NEEDED
     Route: 065
     Dates: start: 20191216
  3. CEPHALEXIN. [Suspect]
     Active Substance: CEPHALEXIN
     Indication: PRODUCT USED FOR UNKNOWN INDICATION
     Dosage: UNKNOWN
     Route: 065
     Dates: start: 20150401
  4. LEVOTHYROXINE. [Concomitant]
     Active Substance: LEVOTHYROXINE
     Indication: ILL-DEFINED DISORDER
     Dosage: AS DIRECTED
     Route: 065
     Dates: start: 20191217
  5. NEBIVOLOL. [Concomitant]
     Active Substance: NEBIVOLOL
     Indication: ILL-DEFINED DISORDER
     Dosage: ONE DAILY
     Route: 065
     Dates: start: 20190416
  6. SODIUM CHLORIDE. [Concomitant]
     Active Substance: SODIUM CHLORIDE
     Indication: ILL-DEFINED DISORDER
     Dosage: AS DIRECTED
     Route: 065
     Dates: start: 20190416
  7. VENTOLIN [Concomitant]
     Active Substance: ALBUTEROL SULFATE
     Indication: ILL-DEFINED DISORDER
     Dosage: TWO PUFFS AS REQUIRED
     Route: 065
     Dates: start: 20190708
  8. AMOXICILLIN. [Concomitant]
     Active Substance: AMOXICILLIN
     Indication: ILL-DEFINED DISORDER
     Dosage: 1 TDS STANDBY COURSE
     Route: 065
     Dates: start: 20191217
  9. RANITIDINE. [Concomitant]
     Active Substance: RANITIDINE
     Indication: ILL-DEFINED DISORDER
     Dosage: 1 NOCTE
     Route: 065
     Dates: start: 20191217
  10. INSULIN PORCINE [Concomitant]
     Active Substance: INSULIN PORK\INSULIN PURIFIED PORK
     Indication: ILL-DEFINED DISORDER
     Dosage: FOR SUBCUTANEOUS INJECTION, ACCORDING TO REQUIR...
     Route: 065
     Dates: start: 20190614
  11. COLECALCIFEROL [Concomitant]
     Active Substance: CHOLECALCIFEROL
     Indication: ILL-DEFINED DISORDER
     Dosage: ONE DAILY
     Route: 065
     Dates: start: 20190416
  12. PRO D3 [Concomitant]
     Active Substance: CHOLECALCIFEROL
     Indication: ILL-DEFINED DISORDER
     Dosage: TWO TO BE TAKEN EACH DAY
     Route: 065
     Dates: start: 20190416
  13. MINITRAN [Concomitant]
     Active Substance: NITROGLYCERIN
     Indication: ILL-DEFINED DISORDER
     Dosage: HALF A PATCH DAILY (16HOURS OUT OF 24 HOURS)
     Route: 065
     Dates: start: 20191209
  14. SODIUM CROMOGLICATE [Concomitant]
     Active Substance: CROMOLYN SODIUM
     Indication: ILL-DEFINED DISORDER
     Dosage: ONE DROP TO BE USED IN THE AFFECTED EYE(S) FOUR...
     Route: 065
     Dates: start: 20190416

REACTIONS (2)
  - Malaise [Unknown]
  - Oropharyngeal pain [Recovered/Resolved]

NARRATIVE: CASE EVENT DATE: 20150401
